FAERS Safety Report 5452213-8 (Version None)
Quarter: 2007Q3

REPORT INFORMATION
  Report Type: 
  Country: None (occurrence: None)
  Receive Date: 20070912
  Receipt Date: 20070904
  Transmission Date: 20080115
  Serious: Yes (Hospitalization)
  Sender: FDA-Public Use
  Company Number: 163-21880-07090136

PATIENT
  Age: 77 Year
  Sex: Female

DRUGS (14)
  1. REVLIMID [Suspect]
     Indication: AMYLOIDOSIS
     Dosage: 10 MG, 1 IN 1 D, ORAL
     Route: 048
     Dates: start: 20070409, end: 20070902
  2. DEXAMETHASONE TAB [Concomitant]
  3. REGLAN [Concomitant]
  4. OXYCONTIN [Concomitant]
  5. LYRICA [Concomitant]
  6. ELAVIL (AMITRIPTYLNE HYDROCHLORIDE) [Concomitant]
  7. DURAGESIC-100 [Concomitant]
  8. EVISTA [Concomitant]
  9. GABAPENTIN [Concomitant]
  10. MORPHINE [Concomitant]
  11. POTASSIUM CHLORIDE [Concomitant]
  12. LACTULOSE [Concomitant]
  13. ASPIRIN [Concomitant]
  14. NEURONTIN [Concomitant]

REACTIONS (3)
  - HYPERTHERMIA [None]
  - MYOCARDIAL INFARCTION [None]
  - NEUROLEPTIC MALIGNANT SYNDROME [None]
